FAERS Safety Report 18254764 (Version 1)
Quarter: 2020Q3

REPORT INFORMATION
  Report Type: Report from Study
  Country: US (occurrence: US)
  Receive Date: 20200910
  Receipt Date: 20200910
  Transmission Date: 20201103
  Serious: Yes (Hospitalization)
  Sender: FDA-Public Use
  Company Number: US-JNJFOC-20200847716

PATIENT
  Sex: Female

DRUGS (2)
  1. STELARA [Suspect]
     Active Substance: USTEKINUMAB
     Indication: PRODUCT USED FOR UNKNOWN INDICATION
     Route: 065
  2. STELARA [Suspect]
     Active Substance: USTEKINUMAB

REACTIONS (6)
  - Haemorrhage [Recovering/Resolving]
  - Gastrointestinal disorder [Recovering/Resolving]
  - Pulmonary oedema [Recovering/Resolving]
  - Vomiting [Recovering/Resolving]
  - Crohn^s disease [Recovering/Resolving]
  - Urinary tract infection [Recovering/Resolving]
